FAERS Safety Report 6965096-1 (Version None)
Quarter: 2010Q3

REPORT INFORMATION
  Report Type: 
  Country: None (occurrence: None)
  Receive Date: 20100903
  Receipt Date: 20100804
  Transmission Date: 20110219
  Serious: No
  Sender: FDA-Public Use
  Company Number: US-BAYER-201030185NA

PATIENT
  Age: 65 Year

DRUGS (1)
  1. ULTRAVIST 370 [Suspect]
     Indication: COMPUTERISED TOMOGRAM ABDOMEN
     Dosage: AS USED: 100 ML
     Dates: start: 20100730, end: 20100730

REACTIONS (2)
  - PRURITUS [None]
  - URTICARIA [None]
